FAERS Safety Report 10847435 (Version 1)
Quarter: 2015Q1

REPORT INFORMATION
  Report Type: Report from Study
  Country: US (occurrence: US)
  Receive Date: 20150220
  Receipt Date: 20150220
  Transmission Date: 20150721
  Serious: Yes (Hospitalization)
  Sender: FDA-Public Use
  Company Number: US-AMGEN-USASL2015005706

PATIENT
  Age: 65 Year
  Sex: Male

DRUGS (2)
  1. DEXAMETHASONE. [Concomitant]
     Active Substance: DEXAMETHASONE
     Indication: PLASMA CELL MYELOMA
     Dosage: 40 MG, QWK
     Route: 065
  2. KYPROLIS [Suspect]
     Active Substance: CARFILZOMIB
     Indication: PLASMA CELL MYELOMA
     Dosage: UNK
     Route: 042
     Dates: start: 20140108, end: 20140123

REACTIONS (6)
  - Chills [Recovered/Resolved]
  - Palpitations [Recovered/Resolved]
  - Pneumonia [Unknown]
  - Cardiac valve disease [Unknown]
  - Tremor [Recovered/Resolved]
  - Light chain analysis increased [Unknown]

NARRATIVE: CASE EVENT DATE: 20140115
